FAERS Safety Report 18378152 (Version 1)
Quarter: 2020Q4

REPORT INFORMATION
  Report Type: Spontaneous
  Country: ES (occurrence: ES)
  Receive Date: 20201013
  Receipt Date: 20201013
  Transmission Date: 20210114
  Serious: Yes (Hospitalization)
  Sender: FDA-Public Use
  Company Number: ES-LUPIN PHARMACEUTICALS INC.-2020-04003

PATIENT
  Age: 2 Year
  Sex: Male

DRUGS (28)
  1. LEVETIRACETAM. [Suspect]
     Active Substance: LEVETIRACETAM
     Indication: PARTIAL SEIZURES
     Dosage: 20 MILLIGRAM/KILOGRAM, QD
     Route: 065
  2. LEVETIRACETAM. [Suspect]
     Active Substance: LEVETIRACETAM
     Dosage: 30 MILLIGRAM/KILOGRAM, QD
     Route: 065
  3. LEVETIRACETAM. [Suspect]
     Active Substance: LEVETIRACETAM
     Dosage: 40 MILLIGRAM/KILOGRAM, QD
     Route: 065
  4. CARBAMAZEPINE. [Suspect]
     Active Substance: CARBAMAZEPINE
     Indication: PARTIAL SEIZURES
     Dosage: 10 MILLIGRAM/KILOGRAM
     Route: 065
  5. LACOSAMIDE. [Concomitant]
     Active Substance: LACOSAMIDE
     Dosage: 5 MILLIGRAM/KILOGRAM, QD
     Route: 016
  6. BRIVARACETAM [Concomitant]
     Active Substance: BRIVARACETAM
     Indication: PARTIAL SEIZURES
     Dosage: 5 MILLIGRAM/KILOGRAM, QD
     Route: 016
  7. BRIVARACETAM [Concomitant]
     Active Substance: BRIVARACETAM
     Dosage: 6 MILLIGRAM/KILOGRAM, QD
     Route: 065
  8. CARBAMAZEPINE. [Suspect]
     Active Substance: CARBAMAZEPINE
     Dosage: 30 MILLIGRAM/KILOGRAM, QD
     Route: 065
  9. CEFOTAXIME [Concomitant]
     Active Substance: CEFOTAXIME SODIUM
     Indication: EVIDENCE BASED TREATMENT
     Dosage: 90 MILLIGRAM/KILOGRAM
     Route: 016
  10. AZITHROMYCIN ANHYDROUS. [Concomitant]
     Active Substance: AZITHROMYCIN ANHYDROUS
     Indication: ANTIBIOTIC THERAPY
     Dosage: 10 MILLIGRAM/KILOGRAM, QD
     Route: 065
  11. LACOSAMIDE. [Concomitant]
     Active Substance: LACOSAMIDE
     Indication: PARTIAL SEIZURES
     Dosage: 1.7 MILLIGRAM/KILOGRAM, QD
     Route: 016
  12. BRIVARACETAM [Concomitant]
     Active Substance: BRIVARACETAM
     Dosage: 6.8 MILLIGRAM/KILOGRAM, QD
     Route: 065
  13. MEROPENEM. [Concomitant]
     Active Substance: MEROPENEM
     Indication: ANTIBIOTIC THERAPY
     Dosage: 40 MILLIGRAM/KILOGRAM
     Route: 016
  14. CARBAMAZEPINE. [Suspect]
     Active Substance: CARBAMAZEPINE
     Dosage: 15 MILLIGRAM/KILOGRAM
     Route: 065
  15. MIDAZOLAM. [Concomitant]
     Active Substance: MIDAZOLAM
     Indication: EVIDENCE BASED TREATMENT
     Dosage: UNK
     Route: 016
  16. PHENYTOIN SODIUM. [Suspect]
     Active Substance: PHENYTOIN SODIUM
     Indication: PARTIAL SEIZURES
     Dosage: RECEIVED FROM DAY 8 TO DAY 9 OF THE HOSPITALISATION
     Route: 065
  17. CARBAMAZEPINE. [Suspect]
     Active Substance: CARBAMAZEPINE
     Dosage: 35 MILLIGRAM/KILOGRAM, QD
     Route: 065
  18. VANCOMYCIN [Concomitant]
     Active Substance: VANCOMYCIN
     Indication: ANTIBIOTIC THERAPY
     Dosage: 10 MILLIGRAM/KILOGRAM
     Route: 016
  19. PIPERACILLIN/TAZOBACTAM [Concomitant]
     Active Substance: PIPERACILLIN SODIUM\TAZOBACTAM SODIUM
     Indication: ANTIBIOTIC THERAPY
     Dosage: UNK
     Route: 065
  20. CLARITHROMYCIN. [Concomitant]
     Active Substance: CLARITHROMYCIN
     Indication: EVIDENCE BASED TREATMENT
     Dosage: 15 MILLIGRAM/KILOGRAM, QD
     Route: 016
  21. RIFAMPIN. [Concomitant]
     Active Substance: RIFAMPIN
     Indication: ANTIBIOTIC THERAPY
     Dosage: 20 MILLIGRAM/KILOGRAM, QD
     Route: 016
  22. ACICLOVIR [Concomitant]
     Active Substance: ACYCLOVIR
     Indication: EVIDENCE BASED TREATMENT
     Dosage: 20 MILLIGRAM/KILOGRAM
     Route: 016
  23. LEVETIRACETAM. [Suspect]
     Active Substance: LEVETIRACETAM
     Dosage: 50 MILLIGRAM/KILOGRAM, QD
     Route: 065
  24. CARBAMAZEPINE. [Suspect]
     Active Substance: CARBAMAZEPINE
     Dosage: 20 MILLIGRAM/KILOGRAM, QD
     Route: 065
  25. LACOSAMIDE. [Concomitant]
     Active Substance: LACOSAMIDE
     Dosage: 3.7 MILLIGRAM/KILOGRAM, QD
     Route: 016
  26. PROPOFOL. [Concomitant]
     Active Substance: PROPOFOL
     Indication: PRODUCT USED FOR UNKNOWN INDICATION
     Dosage: UNK
     Route: 016
  27. LACOSAMIDE. [Concomitant]
     Active Substance: LACOSAMIDE
     Dosage: 3 MILLIGRAM/KILOGRAM, QD
     Route: 016
  28. VALPROIC ACID. [Concomitant]
     Active Substance: VALPROIC ACID
     Indication: PARTIAL SEIZURES
     Dosage: RECEIVED FROM DAY 5 TO DAY 6 OF THE HOSPITALISATION
     Route: 016

REACTIONS (1)
  - Drug ineffective [Unknown]
